FAERS Safety Report 8116872-3 (Version None)
Quarter: 2011Q4

REPORT INFORMATION
  Report Type: 
  Country: None (occurrence: None)
  Receive Date: 20111227
  Receipt Date: 20110503
  Transmission Date: 20120403
  Serious: Yes (Other)
  Sender: FDA-Public Use
  Company Number: PHHY2011US38275

PATIENT
  Age: 70 Year
  Sex: Female

DRUGS (4)
  1. IMODIUM [Concomitant]
  2. ANTIBIOTICS (NO INGREDIENTS/SUBSTANCES) [Concomitant]
  3. FEMARA [Suspect]
     Dosage: 2.5 MG, QD
  4. VITAMINS (NO INGREDIENTS/SUBSTANCES) [Concomitant]

REACTIONS (5)
  - MOVEMENT DISORDER [None]
  - FLATULENCE [None]
  - ARTHRALGIA [None]
  - BACK PAIN [None]
  - DIARRHOEA [None]
